FAERS Safety Report 12599032 (Version 1)
Quarter: 2016Q3

REPORT INFORMATION
  Report Type: Spontaneous
  Country: US (occurrence: None)
  Receive Date: 20160726
  Receipt Date: 20160726
  Transmission Date: 20161109
  Serious: Yes (Hospitalization)
  Sender: FDA-Public Use
  Company Number: None

PATIENT
  Age: 86 Year
  Sex: Male
  Weight: 70 kg

DRUGS (2)
  1. DARATUMUMAB, 100 MG/5 ML [Suspect]
     Active Substance: DARATUMUMAB
     Indication: PLASMA CELL MYELOMA
     Route: 041
     Dates: start: 20160718, end: 20160718
  2. DARATUMUMAB, 400 MG/20 ML [Suspect]
     Active Substance: DARATUMUMAB
     Indication: PLASMA CELL MYELOMA
     Route: 041
     Dates: start: 20160718, end: 20160718

REACTIONS (10)
  - Musculoskeletal pain [None]
  - Dyspnoea [None]
  - Neck pain [None]
  - Pain in extremity [None]
  - Oxygen saturation decreased [None]
  - Chest discomfort [None]
  - Back pain [None]
  - Blood pressure systolic increased [None]
  - Chest pain [None]
  - Infusion related reaction [None]

NARRATIVE: CASE EVENT DATE: 20160718
